FAERS Safety Report 8397493-4 (Version None)
Quarter: 2012Q2

REPORT INFORMATION
  Report Type: 
  Country: None (occurrence: None)
  Receive Date: 20120529
  Receipt Date: 20120529
  Transmission Date: 20120825
  Serious: Yes (Life-Threatening, Hospitalization)
  Sender: FDA-Public Use
  Company Number: None

PATIENT
  Age: 76 Year
  Sex: Male
  Weight: 90.9 kg

DRUGS (1)
  1. CLONAZEPAM [Suspect]
     Indication: ANXIETY
     Dosage: 0.25 MG BID PO
     Route: 048
     Dates: start: 20120411, end: 20120411

REACTIONS (4)
  - SEDATION [None]
  - HYPOTENSION [None]
  - AGITATION [None]
  - AGGRESSION [None]
